FAERS Safety Report 8320129-5 (Version None)
Quarter: 2012Q2

REPORT INFORMATION
  Report Type: 
  Country: None (occurrence: None)
  Receive Date: 20120430
  Receipt Date: 20120418
  Transmission Date: 20120825
  Serious: Yes (Hospitalization, Other)
  Sender: FDA-Public Use
  Company Number: JP-BRISTOL-MYERS SQUIBB COMPANY-16297954

PATIENT
  Age: 30 Year
  Sex: Female
  Weight: 48 kg

DRUGS (6)
  1. LAMICTAL [Suspect]
     Indication: BIPOLAR I DISORDER
     Dosage: TABS
     Route: 048
     Dates: start: 20110501, end: 20111219
  2. ALPRAZOLAM [Concomitant]
     Dosage: TABS
  3. PREDNISOLONE [Suspect]
     Indication: STILL'S DISEASE ADULT ONSET
     Dosage: REG1-15MG-9SE-19OC11 2-10MG-20OC-31OC11 3-7.5MG-1NO-17NO11 4-5MG-18NO-11DE11 5-2.5MG-12DE-18MA12
     Route: 048
     Dates: start: 20110909, end: 20120318
  4. LITHIUM CARBONATE [Concomitant]
     Dosage: TABS
  5. CEFAZOLIN SODIUM [Concomitant]
     Dosage: TAB
     Dates: end: 20111006
  6. ABILIFY [Suspect]
     Indication: BIPOLAR I DISORDER
     Route: 048
     Dates: end: 20111219

REACTIONS (2)
  - PNEUMONIA [None]
  - HYPOGAMMAGLOBULINAEMIA [None]
